FAERS Safety Report 7584897-2 (Version None)
Quarter: 2011Q2

REPORT INFORMATION
  Report Type: 
  Country: None (occurrence: None)
  Receive Date: 20110630
  Receipt Date: 20110621
  Transmission Date: 20111010
  Serious: Yes (Other)
  Sender: FDA-Public Use
  Company Number: US-PFIZER INC-2011121792

PATIENT
  Sex: Male
  Weight: 145 kg

DRUGS (13)
  1. VYTORIN [Concomitant]
     Dosage: 10/40 MG, DAILY
  2. PRISTIQ [Suspect]
     Indication: DEPRESSION
     Dosage: 50 MG, DAILY
     Route: 048
     Dates: start: 20110530
  3. AMARYL [Concomitant]
     Indication: DIABETES MELLITUS
     Dosage: 4 MG, DAILY
     Route: 048
  4. POTASSIUM [Concomitant]
     Dosage: 20 MEQ, 2X/DAY
  5. ALTACE [Concomitant]
     Dosage: 1.25 MG, DAILY
  6. EPHEDRINE [Concomitant]
     Dosage: 325 MG, DAILY
  7. BYETTA [Concomitant]
     Indication: DIABETES MELLITUS
     Dosage: 10 UNITS, DAILY
  8. LASIX [Concomitant]
     Dosage: 40 MG, DAILY
  9. ZOLOFT [Suspect]
     Indication: DEPRESSION
     Dosage: 100 MG, 2X/DAY
     Route: 048
     Dates: end: 20110529
  10. GLUCOPHAGE [Concomitant]
     Indication: DIABETES MELLITUS
     Dosage: 1000 MG, DAILY
  11. METOPROLOL [Concomitant]
     Dosage: 25 MG, DAILY
  12. INSULIN [Concomitant]
     Indication: DIABETES MELLITUS
     Dosage: 90 UNITS IN THE MORNING AND 56 UNITS AT NIGHT
  13. SPIRONOLACTONE [Concomitant]
     Dosage: 25 MG, DAILY

REACTIONS (2)
  - BLOOD GLUCOSE INCREASED [None]
  - DRUG INEFFECTIVE [None]
